FAERS Safety Report 18073392 (Version 1)
Quarter: 2020Q3

REPORT INFORMATION
  Report Type: Spontaneous
  Country: US (occurrence: US)
  Receive Date: 20200727
  Receipt Date: 20200727
  Transmission Date: 20201103
  Serious: No
  Sender: FDA-Public Use
  Company Number: None

PATIENT
  Age: 61 Year

DRUGS (1)
  1. SCENT THEORY ? KEEP CLEAN MOISTURIZING HAND SANITIZER [Suspect]
     Active Substance: ALCOHOL
     Indication: COVID-19
     Dosage: ?          OTHER STRENGTH:COVER HANDS;?
     Route: 061
     Dates: start: 20200430, end: 20200727

REACTIONS (1)
  - Product quality issue [None]
